FAERS Safety Report 6402172-6 (Version None)
Quarter: 2009Q4

REPORT INFORMATION
  Report Type: 
  Country: None (occurrence: None)
  Receive Date: 20091015
  Receipt Date: 20091008
  Transmission Date: 20100525
  Serious: Yes (Hospitalization)
  Sender: FDA-Public Use
  Company Number: US-B.I. PHARMACEUTICALS,INC./RIDGEFIELD-2009-BP-07217BP

PATIENT
  Sex: Male

DRUGS (10)
  1. FLOMAX [Suspect]
     Indication: PROSTATOMEGALY
     Dates: start: 20060101
  2. FLOMAX [Suspect]
     Indication: DYSURIA
     Dosage: 0.4 MG
     Dates: start: 20090301
  3. CARTIA XT [Suspect]
     Indication: HEART RATE INCREASED
     Dosage: 120 MG
     Route: 048
     Dates: start: 20081201
  4. KLOR-CON M [Concomitant]
  5. WARFARIN SODIUM [Concomitant]
  6. HYDRALAZINE HCL [Concomitant]
     Dosage: 25 MG
  7. CARBIDOPA-LEVO [Concomitant]
  8. FUROSEMIDE [Concomitant]
     Dosage: 40 MG
  9. SPIRIVA [Concomitant]
  10. XOPENEX [Concomitant]

REACTIONS (5)
  - ATRIAL FIBRILLATION [None]
  - DYSURIA [None]
  - GYNAECOMASTIA [None]
  - LUNG DISORDER [None]
  - PROSTATOMEGALY [None]
